FAERS Safety Report 20110675 (Version 1)
Quarter: 2021Q4

REPORT INFORMATION
  Report Type: Spontaneous
  Country: CA (occurrence: CA)
  Receive Date: 20211124
  Receipt Date: 20211124
  Transmission Date: 20220303
  Serious: Yes (Hospitalization)
  Sender: FDA-Public Use
  Company Number: CA-TEVA-2021-CA-1980686

PATIENT
  Age: 67 Year
  Sex: Male

DRUGS (1)
  1. GLYBURIDE [Suspect]
     Active Substance: GLYBURIDE
     Route: 048

REACTIONS (3)
  - Diarrhoea [Unknown]
  - Hypoglycaemia [Unknown]
  - Hypophagia [Unknown]
